FAERS Safety Report 4845142-1 (Version None)
Quarter: 2005Q4

REPORT INFORMATION
  Report Type: 
  Country: None (occurrence: None)
  Receive Date: 20051115
  Receipt Date: 20050923
  Transmission Date: 20060501
  Serious: Yes (Other)
  Sender: FDA-Public Use
  Company Number: 418862

PATIENT
  Sex: Female
  Weight: 62.6 kg

DRUGS (2)
  1. PEGASYS [Suspect]
     Indication: DRUG USE FOR UNKNOWN INDICATION
     Dosage: SUBCUTANEOUS
     Route: 058
     Dates: end: 20050515
  2. COPEGUS [Suspect]
     Indication: DRUG USE FOR UNKNOWN INDICATION
     Dosage: ORAL
     Route: 048

REACTIONS (13)
  - ASTHENIA [None]
  - DRY SKIN [None]
  - EPISTAXIS [None]
  - ERYTHEMA [None]
  - FEELING ABNORMAL [None]
  - FOOD CRAVING [None]
  - GINGIVAL BLEEDING [None]
  - INSOMNIA [None]
  - LIP DRY [None]
  - PARAESTHESIA [None]
  - PLATELET COUNT DECREASED [None]
  - PRURITUS [None]
  - WEIGHT DECREASED [None]
